FAERS Safety Report 24218868 (Version 1)
Quarter: 2024Q3

REPORT INFORMATION
  Report Type: Spontaneous
  Country: US (occurrence: None)
  Receive Date: 20240815
  Receipt Date: 20240815
  Transmission Date: 20241016
  Serious: No
  Sender: Public
  Company Number: None

PATIENT
  Age: 20 Year
  Sex: Female
  Weight: 63 kg

DRUGS (1)
  1. MONISTAT 3 [Suspect]
     Active Substance: MICONAZOLE NITRATE
     Indication: Fungal infection
     Dosage: 1 SUPPOSITORY AT BEDTIME VAGINAL
     Route: 067

REACTIONS (3)
  - Burning sensation [None]
  - Pruritus [None]
  - Infection [None]

NARRATIVE: CASE EVENT DATE: 20240815
